FAERS Safety Report 7268716-X (Version None)
Quarter: 2011Q1

REPORT INFORMATION
  Report Type: 
  Country: None (occurrence: None)
  Receive Date: 20110124
  Receipt Date: 20110111
  Transmission Date: 20110831
  Serious: Yes (Hospitalization)
  Sender: FDA-Public Use
  Company Number: 803711

PATIENT
  Age: 27 Year
  Sex: Male

DRUGS (6)
  1. CYCLOPHOSPHAMIDE [Suspect]
     Indication: PRECURSOR T-LYMPHOBLASTIC LYMPHOMA/LEUKAEMIA
     Dosage: 2 G/M^2 ; 3 G/M^2 X 2 DAYS
     Dates: start: 20050701, end: 20050901
  2. CYCLOPHOSPHAMIDE [Suspect]
     Indication: PRECURSOR T-LYMPHOBLASTIC LYMPHOMA/LEUKAEMIA
     Dosage: 2 G/M^2 ; 3 G/M^2 X 2 DAYS
     Dates: start: 20050701, end: 20050901
  3. METHOTREXATE [Suspect]
     Indication: PRECURSOR T-LYMPHOBLASTIC LYMPHOMA/LEUKAEMIA
     Dosage: 40 MG/M^2 WEEKLY, INTRAVENOUS (NOT OTHERWISE SPECIFIED)
     Route: 042
     Dates: end: 20080110
  4. (ETOPOSIE) [Concomitant]
  5. CISPLATIN [Concomitant]
  6. MERCAPTOPURINE [Concomitant]

REACTIONS (4)
  - THERAPEUTIC RESPONSE DECREASED [None]
  - PULMONARY FIBROSIS [None]
  - PNEUMOTHORAX [None]
  - RESTRICTIVE PULMONARY DISEASE [None]
